FAERS Safety Report 8052254-0 (Version None)
Quarter: 2012Q1

REPORT INFORMATION
  Report Type: 
  Country: None (occurrence: None)
  Receive Date: 20120118
  Receipt Date: 20120111
  Transmission Date: 20120608
  Serious: Yes (Disabling)
  Sender: FDA-Public Use
  Company Number: US-JNJFOC-20120104186

PATIENT
  Sex: Female
  Weight: 74.84 kg

DRUGS (4)
  1. ALPRAZOLAM [Concomitant]
     Indication: SLEEP DISORDER
     Route: 065
  2. REMICADE [Suspect]
     Indication: COLITIS ULCERATIVE
     Route: 042
     Dates: start: 20090501
  3. AZATHIOPRINE [Concomitant]
     Indication: COLITIS ULCERATIVE
     Route: 065
     Dates: end: 20091001
  4. APRISO [Concomitant]
     Route: 065

REACTIONS (1)
  - DEPRESSION [None]
